FAERS Safety Report 6443075-0 (Version None)
Quarter: 2009Q4

REPORT INFORMATION
  Report Type: 
  Country: None (occurrence: None)
  Receive Date: 20091117
  Receipt Date: 20091030
  Transmission Date: 20100525
  Serious: Yes (Other)
  Sender: FDA-Public Use
  Company Number: PHHY2009FR46490

PATIENT
  Sex: Male

DRUGS (1)
  1. NISISCO [Suspect]
     Indication: HYPERTENSION
     Dosage: 1 TABLET DAILY
     Route: 048
     Dates: start: 20050101, end: 20091012

REACTIONS (12)
  - ANGIOEDEMA [None]
  - AORTIC DILATATION [None]
  - AORTIC DISORDER [None]
  - BENIGN PROSTATIC HYPERPLASIA [None]
  - C-REACTIVE PROTEIN INCREASED [None]
  - CARDIAC MURMUR [None]
  - GAIT DISTURBANCE [None]
  - GENERALISED OEDEMA [None]
  - LYMPHOCYTOSIS [None]
  - PURPURA [None]
  - RASH [None]
  - SKIN REACTION [None]
